FAERS Safety Report 9513006 (Version 2)
Quarter: 2013Q3

REPORT INFORMATION
  Report Type: Spontaneous
  Country: BR (occurrence: BR)
  Receive Date: 20130910
  Receipt Date: 20130910
  Transmission Date: 20140515
  Serious: Yes (Death)
  Sender: FDA-Public Use
  Company Number: BR-PFIZER INC-2013074434

PATIENT
  Age: 62 Year
  Sex: Female
  Weight: 48 kg

DRUGS (5)
  1. SUTENT [Suspect]
     Indication: RENAL CELL CARCINOMA
     Dosage: 50 MG, CYCLIC, 4 WEEKS ON/2 WEEKS OFF
     Route: 048
     Dates: start: 20130228, end: 20130326
  2. SUTENT [Suspect]
     Indication: RENAL CANCER
     Dosage: 50 MG, 1X/DAY (ONE CAPSULE DAILY)
     Route: 048
  3. TYLEX [Concomitant]
     Indication: PAIN
  4. FERROUS SULFATE [Concomitant]
     Indication: ANAEMIA
     Dosage: 1 DF, 1X/DAY
  5. EPOETIN ALFA [Concomitant]
     Indication: ANAEMIA
     Dosage: 4000 (UNITS UNSPECIFIED), MONTLLY

REACTIONS (8)
  - Death [Fatal]
  - Spinal column injury [Unknown]
  - Vomiting [Unknown]
  - Disease progression [Unknown]
  - Renal cell carcinoma [Unknown]
  - Asthenia [Not Recovered/Not Resolved]
  - Diarrhoea [Unknown]
  - Constipation [Unknown]
